FAERS Safety Report 10274454 (Version 6)
Quarter: 2015Q2

REPORT INFORMATION
  Report Type: Spontaneous
  Country: US (occurrence: US)
  Receive Date: 20140702
  Receipt Date: 20150508
  Transmission Date: 20150821
  Serious: Yes (Hospitalization, Other)
  Sender: FDA-Public Use
  Company Number: US-PFIZER INC-2014181271

PATIENT
  Age: 56 Year
  Sex: Male

DRUGS (9)
  1. LYRICA [Suspect]
     Active Substance: PREGABALIN
     Dosage: 200 MG, 3X/DAY
     Dates: start: 201403
  2. CIPROFLOXACIN. [Concomitant]
     Active Substance: CIPROFLOXACIN
     Indication: PAIN IN EXTREMITY
     Dosage: 500 MG, 2X/DAY
     Route: 048
     Dates: start: 20141017, end: 201502
  3. AMLODINE [Concomitant]
     Active Substance: AMLODIPINE BESYLATE
     Dosage: 5 MG, 1X/DAY
     Dates: start: 20140121, end: 201502
  4. ATENOL [Concomitant]
     Active Substance: ATENOLOL
     Dosage: 50 MG, 1X/DAY
     Dates: start: 20140121
  5. CLONAZEPAM. [Concomitant]
     Active Substance: CLONAZEPAM
     Dosage: 2 MG, 1X/DAY
     Dates: start: 1994
  6. LYRICA [Suspect]
     Active Substance: PREGABALIN
     Dosage: 125 MG, 3X/DAY
     Dates: start: 201404
  7. FUROSEMIDE. [Concomitant]
     Active Substance: FUROSEMIDE
     Dosage: 40 MG, 1X/DAY
     Dates: start: 20140121
  8. LYRICA [Suspect]
     Active Substance: PREGABALIN
     Indication: NEUROPATHY PERIPHERAL
     Dosage: 100MG, 2X/DAY
     Dates: start: 20140118
  9. SMZ TMP DS [Concomitant]
     Dosage: [SULFAMETHOXAZOLE 800MG]/[TRIMETHOPRIM 160MG], UNK
     Dates: start: 20141017, end: 201502

REACTIONS (2)
  - Drug intolerance [Recovered/Resolved]
  - Rash generalised [Recovered/Resolved]

NARRATIVE: CASE EVENT DATE: 201403
